FAERS Safety Report 10271758 (Version 1)
Quarter: 2014Q3

REPORT INFORMATION
  Report Type: Spontaneous
  Country: US (occurrence: US)
  Receive Date: 20140701
  Receipt Date: 20140701
  Transmission Date: 20150326
  Serious: No
  Sender: FDA-Public Use
  Company Number: -SAAVPROD-CERZ-1003080

PATIENT
  Age: 1 Year
  Sex: Male

DRUGS (1)
  1. IMIGLUCERASE [Suspect]
     Active Substance: IMIGLUCERASE
     Indication: GAUCHER^S DISEASE
     Dosage: 800 U, Q2W DOSE:800 UNIT(S)
     Route: 042
     Dates: start: 20130103

REACTIONS (2)
  - Adverse event [Unknown]
  - Gastrointestinal infection [Unknown]

NARRATIVE: CASE EVENT DATE: 20130625
